FAERS Safety Report 8260020-6 (Version None)
Quarter: 2012Q2

REPORT INFORMATION
  Report Type: 
  Country: None (occurrence: None)
  Receive Date: 20120404
  Receipt Date: 20120402
  Transmission Date: 20120825
  Serious: Yes (Hospitalization, Other)
  Sender: FDA-Public Use
  Company Number: US-PFIZER INC-2012083196

PATIENT
  Sex: Male
  Weight: 82.54 kg

DRUGS (14)
  1. LIPITOR [Suspect]
     Indication: CARDIAC DISORDER
     Dosage: 40 MG, DAILY
     Route: 048
  2. LISINOPRIL [Concomitant]
     Dosage: 30 MG, DAILY
  3. PLAVIX [Concomitant]
     Dosage: 75 MG, DAILY
  4. ACETYLSALICYLIC ACID [Concomitant]
     Dosage: 325 MG, DAILY
  5. CARDURA [Concomitant]
     Dosage: 4 MG, DAILY
  6. PANCRELIPASE [Concomitant]
     Indication: ENZYME ABNORMALITY
     Dosage: 5000 IU, UNK
  7. VITAMIN D [Concomitant]
     Indication: SUPPLEMENTATION THERAPY
     Dosage: 2000 IU, DAILY
  8. FINASTERIDE [Concomitant]
     Dosage: 5 MG, DAILY
  9. LANTUS [Concomitant]
     Indication: DIABETES MELLITUS
     Dosage: 33 IU, DAILY
  10. LOPERAMIDE HYDROCHLORIDE [Concomitant]
     Indication: DIARRHOEA
     Dosage: 5 MG, AS NEEDED
  11. VITAMIN B-12 [Concomitant]
     Indication: SUPPLEMENTATION THERAPY
     Dosage: 5000 UG, DAILY
  12. ACETAMINOPHEN [Concomitant]
     Dosage: 500 MG, AS NEEDED
  13. HYDROCODONE [Concomitant]
     Indication: PAIN
     Dosage: 325 MG, AS NEEDED (EVERY FOUR HOURS)
  14. METOPROLOL [Concomitant]
     Indication: HYPERTENSION
     Dosage: 25 MG, UNK

REACTIONS (1)
  - CARDIAC VALVE DISEASE [None]
